FAERS Safety Report 7381056-3 (Version None)
Quarter: 2011Q1

REPORT INFORMATION
  Report Type: 
  Country: None (occurrence: None)
  Receive Date: 20110329
  Receipt Date: 20100427
  Transmission Date: 20110831
  Serious: No
  Sender: FDA-Public Use
  Company Number: US-AMGEN-QUU408772

PATIENT
  Age: 63 Year
  Sex: Male

DRUGS (9)
  1. LISINOPRIL [Concomitant]
     Dosage: UNK UNK, UNK
  2. CARVEDILOL [Concomitant]
     Dosage: UNK UNK, UNK
  3. SENSIPAR [Suspect]
     Indication: HYPERPARATHYROIDISM SECONDARY
     Dosage: 60 MG, QD
     Dates: start: 20080221, end: 20100401
  4. VALSARTAN [Concomitant]
     Dosage: UNK UNK, UNK
  5. INSULIN [Concomitant]
     Dosage: UNK UNK, UNK
  6. CLONIDINE [Concomitant]
     Dosage: UNK UNK, UNK
  7. SEVELAMER [Concomitant]
     Dosage: UNK UNK, UNK
  8. GABAPENTIN [Concomitant]
     Dosage: UNK UNK, UNK
  9. ACETAMINOPHEN AND HYDROCODONE BITARTRATE [Concomitant]
     Dosage: UNK UNK, UNK

REACTIONS (1)
  - DIZZINESS [None]
